FAERS Safety Report 19042875 (Version 2)
Quarter: 2021Q1

REPORT INFORMATION
  Report Type: Spontaneous
  Country: QA (occurrence: QA)
  Receive Date: 20210323
  Receipt Date: 20210325
  Transmission Date: 20210420
  Serious: Yes (Death, Life-Threatening, Hospitalization, Other)
  Sender: FDA-Public Use
  Company Number: QA-STRIDES ARCOLAB LIMITED-2021SP003140

PATIENT
  Age: 60 Year
  Sex: Male
  Weight: 72 kg

DRUGS (5)
  1. TOCILIZUMAB. [Suspect]
     Active Substance: TOCILIZUMAB
     Indication: PRODUCT USED FOR UNKNOWN INDICATION
     Dosage: 600 MILLIGRAM, ONCE TOTAL
     Route: 065
  2. TOCILIZUMAB. [Suspect]
     Active Substance: TOCILIZUMAB
     Dosage: 400 MILLIGRAM, ONCE TOTAL
     Route: 065
  3. TOCILIZUMAB. [Suspect]
     Active Substance: TOCILIZUMAB
     Dosage: 600 MILLIGRAM, ONCE TOTAL
     Route: 065
  4. HYDROCORTISONE. [Suspect]
     Active Substance: HYDROCORTISONE
     Indication: COVID-19
     Dosage: UNK
     Route: 065
  5. METHYLPREDNISOLONE. [Suspect]
     Active Substance: METHYLPREDNISOLONE
     Indication: COVID-19
     Dosage: UNK, SEVERAL DOSES
     Route: 065

REACTIONS (7)
  - Sepsis [Fatal]
  - Candida infection [Recovered/Resolved]
  - Acute kidney injury [Not Recovered/Not Resolved]
  - Systemic candida [Recovered/Resolved]
  - Off label use [Unknown]
  - Cryptococcosis [Fatal]
  - Gastrointestinal haemorrhage [Recovered/Resolved]
